FAERS Safety Report 5443844-X (Version None)
Quarter: 2007Q3

REPORT INFORMATION
  Report Type: 
  Country: None (occurrence: None)
  Receive Date: 20070905
  Receipt Date: 20070831
  Transmission Date: 20080115
  Serious: Yes (Hospitalization)
  Sender: FDA-Public Use
  Company Number: JP-BOEHRINGER INGELHEIM PHARMACEUTICALS, INC.-2007-BP-06952NB

PATIENT
  Sex: Female
  Weight: 36 kg

DRUGS (6)
  1. MICARDIS [Suspect]
     Indication: HYPERTENSION
     Route: 048
     Dates: start: 20060412
  2. ADALAT [Concomitant]
     Indication: HYPERTENSION
     Route: 048
     Dates: start: 20060412, end: 20061031
  3. TENORMIN [Concomitant]
     Indication: HYPERTENSION
     Route: 048
     Dates: end: 20061030
  4. TICLOPIDINE HCL [Concomitant]
     Route: 048
  5. EPADEL [Concomitant]
     Route: 048
     Dates: end: 20061030
  6. ALDACTONE [Concomitant]
     Indication: HYPERTENSION
     Route: 048
     Dates: start: 20060412, end: 20061030

REACTIONS (1)
  - CARDIAC FAILURE [None]
